APPROVED DRUG PRODUCT: IOPAMIDOL
Active Ingredient: IOPAMIDOL
Strength: 41%
Dosage Form/Route: INJECTABLE;INJECTION
Application: A215382 | Product #001 | TE Code: AP1
Applicant: HAINAN POLY PHARM CO LTD
Approved: Feb 27, 2023 | RLD: No | RS: No | Type: RX